FAERS Safety Report 24061640 (Version 1)
Quarter: 2024Q3

REPORT INFORMATION
  Report Type: Spontaneous
  Country: US (occurrence: None)
  Receive Date: 20240705
  Receipt Date: 20240705
  Transmission Date: 20241016
  Serious: Yes (Other)
  Sender: Public
  Company Number: None

PATIENT
  Age: 64 Year
  Sex: Female
  Weight: 65 kg

DRUGS (1)
  1. XDEMVY [Suspect]
     Active Substance: LOTILANER
     Indication: Demodex blepharitis
     Dosage: 1 DROP INTO BOTH EYES  BID OPHTHALMIC??THERAPY STARTED ON: 06/18/202?
     Route: 047
     Dates: end: 20240620

REACTIONS (2)
  - Vision blurred [None]
  - Impaired driving ability [None]

NARRATIVE: CASE EVENT DATE: 20240618
